FAERS Safety Report 23666116 (Version 2)
Quarter: 2024Q2

REPORT INFORMATION
  Report Type: Spontaneous
  Country: US (occurrence: US)
  Receive Date: 20240324
  Receipt Date: 20240413
  Transmission Date: 20240715
  Serious: Yes (Other)
  Sender: FDA-Public Use
  Company Number: US-AUROBINDO-AUR-APL-2024-012552

PATIENT
  Age: 28 Year
  Sex: Female

DRUGS (6)
  1. FUROSEMIDE [Suspect]
     Active Substance: FUROSEMIDE
     Indication: Pulmonary oedema
     Dosage: 20 MILLIGRAM, DAILY
     Route: 042
  2. MILRINONE LACTATE [Suspect]
     Active Substance: MILRINONE LACTATE
     Indication: Product used for unknown indication
     Dosage: UNK
     Route: 065
  3. EPINEPHRINE [Suspect]
     Active Substance: EPINEPHRINE
     Indication: Product used for unknown indication
     Dosage: UNK
     Route: 065
  4. CEFEPIME [Suspect]
     Active Substance: CEFEPIME HYDROCHLORIDE
     Indication: Pulmonary oedema
     Dosage: UNK
     Route: 065
  5. BUMETANIDE [Suspect]
     Active Substance: BUMETANIDE
     Indication: Pulmonary oedema
     Dosage: UNK
     Route: 065
  6. DOXORUBICIN [Concomitant]
     Active Substance: DOXORUBICIN
     Indication: Product used for unknown indication
     Dosage: UNK
     Route: 065

REACTIONS (2)
  - Drug ineffective [Unknown]
  - Pyrexia [Unknown]
